FAERS Safety Report 10394559 (Version 2)
Quarter: 2014Q4

REPORT INFORMATION
  Report Type: Spontaneous
  Country: US (occurrence: US)
  Receive Date: 20140820
  Receipt Date: 20141003
  Transmission Date: 20150528
  Serious: Yes (Other)
  Sender: FDA-Public Use
  Company Number: US-AMGEN-USASP2014062178

PATIENT
  Age: 66 Year
  Sex: Female

DRUGS (3)
  1. VITAMIN D                          /00107901/ [Concomitant]
     Active Substance: ERGOCALCIFEROL
  2. PROLIA [Suspect]
     Active Substance: DENOSUMAB
     Indication: OSTEOPOROSIS
     Dosage: 60 UNK, UNK
     Route: 058
     Dates: start: 20131018
  3. CALCIUM [Concomitant]
     Active Substance: CALCIUM

REACTIONS (9)
  - Insomnia [Unknown]
  - Sciatica [Unknown]
  - Skin haemorrhage [Unknown]
  - Gingival disorder [Unknown]
  - Bone resorption test abnormal [Unknown]
  - Contusion [Unknown]
  - Gingival recession [Unknown]
  - Gingival bleeding [Unknown]
  - Back pain [Unknown]

NARRATIVE: CASE EVENT DATE: 2014
